FAERS Safety Report 17855738 (Version 2)
Quarter: 2022Q1

REPORT INFORMATION
  Report Type: Spontaneous
  Country: US (occurrence: US)
  Receive Date: 20200603
  Receipt Date: 20220209
  Transmission Date: 20220423
  Serious: No
  Sender: FDA-Public Use
  Company Number: US-GW PHARMA-202005USGW01960

PATIENT

DRUGS (3)
  1. EPIDIOLEX [Suspect]
     Active Substance: CANNABIDIOL
     Indication: Partial seizures
     Dosage: 250 MILLIGRAM, BID
     Route: 048
  2. EPIDIOLEX [Suspect]
     Active Substance: CANNABIDIOL
     Indication: Epilepsy
     Dosage: DECREASE AMOUNT OF MEDICATION TAKEN TO KEEP FROM RUNNING OUT
     Route: 048
  3. EPIDIOLEX [Suspect]
     Active Substance: CANNABIDIOL
     Indication: Focal dyscognitive seizures

REACTIONS (5)
  - Seizure [Unknown]
  - Multiple injuries [Unknown]
  - Incorrect dose administered [Unknown]
  - Product use in unapproved indication [Not Recovered/Not Resolved]
  - Product supply issue [Unknown]
